FAERS Safety Report 9455281 (Version 1)
Quarter: 2013Q3

REPORT INFORMATION
  Report Type: Spontaneous
  Country: US (occurrence: US)
  Receive Date: 20130813
  Receipt Date: 20130813
  Transmission Date: 20140515
  Serious: Yes (Hospitalization)
  Sender: FDA-Public Use
  Company Number: US-BAYER-2013-096348

PATIENT
  Age: 32 Year
  Sex: Female

DRUGS (5)
  1. YAZ [Suspect]
  2. YASMIN [Suspect]
  3. SULFAMETHOXAZOLE/TRIMETHOPRIM [Concomitant]
  4. DOXYCYCLINE [Concomitant]
  5. BACTRIM DS [Concomitant]

REACTIONS (2)
  - Deep vein thrombosis [Recovered/Resolved]
  - Vena cava thrombosis [Recovered/Resolved]
